FAERS Safety Report 22251564 (Version 1)
Quarter: 2023Q2

REPORT INFORMATION
  Report Type: Report from Study
  Country: US (occurrence: US)
  Receive Date: 20230425
  Receipt Date: 20230425
  Transmission Date: 20230722
  Serious: Yes (Hospitalization)
  Sender: FDA-Public Use
  Company Number: US-GILEAD-2023-0622916

PATIENT
  Age: 54 Year
  Sex: Female

DRUGS (2)
  1. AMBRISENTAN [Suspect]
     Active Substance: AMBRISENTAN
     Indication: Pulmonary arterial hypertension
     Dosage: 10 MG, QD/10MG 1 TABLET BY MOUTH DAILY
     Route: 048
     Dates: start: 20181023
  2. KEFLEX [Concomitant]
     Active Substance: CEPHALEXIN
     Dosage: 500MG X 10 DAYS
     Dates: start: 20230415

REACTIONS (1)
  - Staphylococcal infection [Not Recovered/Not Resolved]

NARRATIVE: CASE EVENT DATE: 20230401
